FAERS Safety Report 23564412 (Version 1)
Quarter: 2024Q1

REPORT INFORMATION
  Report Type: Spontaneous
  Country: US (occurrence: US)
  Receive Date: 20240226
  Receipt Date: 20240226
  Transmission Date: 20240410
  Serious: Yes (Other)
  Sender: FDA-Public Use
  Company Number: US-ABBVIE-5653672

PATIENT
  Sex: Female

DRUGS (1)
  1. SYNTHROID [Suspect]
     Active Substance: LEVOTHYROXINE SODIUM
     Indication: Product used for unknown indication
     Route: 048

REACTIONS (9)
  - Thyroidectomy [Unknown]
  - Weight increased [Unknown]
  - Hair texture abnormal [Unknown]
  - Onychoclasis [Unknown]
  - Constipation [Unknown]
  - Nasopharyngitis [Unknown]
  - Myalgia [Unknown]
  - Arthralgia [Unknown]
  - Skin disorder [Unknown]
